FAERS Safety Report 19464689 (Version 5)
Quarter: 2021Q4

REPORT INFORMATION
  Report Type: Report from Study
  Country: None (occurrence: JP)
  Receive Date: 20210626
  Receipt Date: 20211019
  Transmission Date: 20220303
  Serious: Yes (Hospitalization)
  Sender: FDA-Public Use
  Company Number: JP-TAKEDA-2021TJP041365

PATIENT
  Age: 75 Year
  Sex: Male
  Weight: 62.3 kg

DRUGS (5)
  1. LEUPROLIDE ACETATE [Suspect]
     Active Substance: LEUPROLIDE ACETATE
     Indication: Bulbospinal muscular atrophy congenital
     Dosage: 11.25 MILLIGRAM, Q3MONTHS
     Route: 058
     Dates: start: 20180829
  2. AZELNIDIPINE [Concomitant]
     Active Substance: AZELNIDIPINE
     Indication: Product used for unknown indication
     Dosage: 16 MILLIGRAM
     Route: 065
  3. TELMISARTAN [Concomitant]
     Active Substance: TELMISARTAN
     Indication: Product used for unknown indication
     Dosage: 40 MILLIGRAM
     Route: 065
  4. DOXAZOSIN [Concomitant]
     Active Substance: DOXAZOSIN MESYLATE
     Indication: Product used for unknown indication
     Dosage: 2 MILLIGRAM
     Route: 065
  5. FLURBIPROFEN [Concomitant]
     Active Substance: FLURBIPROFEN
     Indication: Bulbospinal muscular atrophy congenital
     Dosage: 40 MILLIGRAM
     Route: 065
     Dates: start: 20190809

REACTIONS (5)
  - Tibia fracture [Recovered/Resolved with Sequelae]
  - Fibula fracture [Recovered/Resolved with Sequelae]
  - Fall [Recovered/Resolved with Sequelae]
  - Gastrooesophageal reflux disease [Not Recovered/Not Resolved]
  - Constipation [Not Recovered/Not Resolved]

NARRATIVE: CASE EVENT DATE: 20191116
